FAERS Safety Report 7406685-X (Version None)
Quarter: 2011Q2

REPORT INFORMATION
  Report Type: 
  Country: None (occurrence: None)
  Receive Date: 20110411
  Receipt Date: 20110408
  Transmission Date: 20111010
  Serious: Yes (Other)
  Sender: FDA-Public Use
  Company Number: US-PFIZER INC-2011078413

PATIENT
  Sex: Male

DRUGS (4)
  1. ARTHROTEC [Suspect]
     Indication: BACK DISORDER
     Dosage: UNK, DAILY
     Route: 048
     Dates: start: 20100601, end: 20100601
  2. ARTHROTEC [Suspect]
     Indication: ARTHRITIS
  3. ARTHROTEC [Suspect]
     Indication: INTERVERTEBRAL DISC DISORDER
  4. ULTRAM [Concomitant]
     Dosage: UNK

REACTIONS (8)
  - EYE HAEMORRHAGE [None]
  - DYSGEUSIA [None]
  - DRUG INEFFECTIVE [None]
  - MUSCLE SPASMS [None]
  - DRUG ADMINISTRATION ERROR [None]
  - CONFUSIONAL STATE [None]
  - OCULAR ICTERUS [None]
  - MYALGIA [None]
